FAERS Safety Report 24238725 (Version 1)
Quarter: 2024Q3

REPORT INFORMATION
  Report Type: Spontaneous
  Country: US (occurrence: US)
  Receive Date: 20240822
  Receipt Date: 20240822
  Transmission Date: 20241017
  Serious: No
  Sender: PFIZER
  Company Number: US-PFIZER INC-202400238936

PATIENT
  Sex: Male

DRUGS (1)
  1. NURTEC ODT [Suspect]
     Active Substance: RIMEGEPANT SULFATE
     Dosage: UNK
     Dates: start: 20240818

REACTIONS (5)
  - Nausea [Unknown]
  - Diplopia [Unknown]
  - Eyelid disorder [Unknown]
  - Blood pressure increased [Unknown]
  - Therapeutic response unexpected [Unknown]
